FAERS Safety Report 24446986 (Version 2)
Quarter: 2024Q4

REPORT INFORMATION
  Report Type: Spontaneous
  Country: JP (occurrence: JP)
  Receive Date: 20241016
  Receipt Date: 20241115
  Transmission Date: 20250114
  Serious: Yes (Other)
  Sender: EISAI
  Company Number: JP-Eisai-EC-2024-176480

PATIENT
  Sex: Male

DRUGS (9)
  1. LENVIMA [Suspect]
     Active Substance: LENVATINIB
     Indication: Renal cell carcinoma
     Route: 048
     Dates: start: 20230925, end: 2023
  2. LENVIMA [Suspect]
     Active Substance: LENVATINIB
     Route: 048
     Dates: start: 2023, end: 20231227
  3. LENVIMA [Suspect]
     Active Substance: LENVATINIB
     Dosage: FREQUENCY UNKNOWN
     Route: 048
     Dates: start: 20240131, end: 2024
  4. LENVIMA [Suspect]
     Active Substance: LENVATINIB
     Dosage: FREQUENCY UNKNOWN
     Route: 048
     Dates: start: 2024
  5. KEYTRUDA [Suspect]
     Active Substance: PEMBROLIZUMAB
     Indication: Renal cell carcinoma
     Route: 041
     Dates: start: 20230925, end: 2024
  6. KEYTRUDA [Suspect]
     Active Substance: PEMBROLIZUMAB
     Dosage: UNKNOWN DOSE AND FREQUENCY
     Route: 041
     Dates: start: 2024
  7. AMLODIPINE [Concomitant]
     Active Substance: AMLODIPINE BESYLATE
     Indication: Hypertension
     Route: 048
  8. AMLODIPINE [Concomitant]
     Active Substance: AMLODIPINE BESYLATE
     Route: 048
  9. AMLODIPINE [Concomitant]
     Active Substance: AMLODIPINE BESYLATE
     Route: 048

REACTIONS (1)
  - Adrenal insufficiency [Recovered/Resolved]

NARRATIVE: CASE EVENT DATE: 20240801
